FAERS Safety Report 4755490-1 (Version None)
Quarter: 2005Q3

REPORT INFORMATION
  Report Type: 
  Country: None (occurrence: None)
  Receive Date: 20050829
  Receipt Date: 20050813
  Transmission Date: 20060218
  Serious: Yes (Other)
  Sender: FDA-Public Use
  Company Number: 2005117378

PATIENT
  Age: 87 Year
  Sex: Male

DRUGS (3)
  1. COOL MINT LISTERINE (MENTHOL, METHYL SALICYLATE, EUCALYPTOL, THYMOL) [Suspect]
     Indication: DENTAL DISORDER PROPHYLAXIS
     Dosage: 2 TEASPOONS 2 TIMES A DAY, ORAL TOPICAL
     Route: 048
  2. COOL MINT LISTERINE POCKETPAKS (MENTHOL, METHYL SALICYLATE, EUCALYPTOL [Suspect]
     Dosage: ORAL TOPICAL
     Route: 048
  3. VITAMINS NOS (VITAMINS NOS) [Concomitant]

REACTIONS (2)
  - DYSPHAGIA [None]
  - FOREIGN BODY TRAUMA [None]
